FAERS Safety Report 6200698-1 (Version None)
Quarter: 2009Q2

REPORT INFORMATION
  Report Type: 
  Country: None (occurrence: None)
  Receive Date: 20090522
  Receipt Date: 20090515
  Transmission Date: 20091009
  Serious: Yes (Disabling, Other)
  Sender: FDA-Public Use
  Company Number: US-MERCK-0810USA05279

PATIENT
  Age: 42 Year
  Sex: Female

DRUGS (3)
  1. FOSAMAX [Suspect]
     Indication: OSTEOPOROSIS
     Route: 048
     Dates: start: 20050101
  2. FOSAMAX [Suspect]
     Route: 048
     Dates: start: 20060201, end: 20060501
  3. FOSAMAX PLUS D [Suspect]
     Indication: OSTEOPOROSIS
     Route: 048
     Dates: start: 20060701, end: 20080101

REACTIONS (39)
  - ABSCESS LIMB [None]
  - ARACHNOIDITIS [None]
  - ARRHYTHMIA [None]
  - ARTHRITIS [None]
  - ARTHROPOD BITE [None]
  - ASTHMA [None]
  - BREAST DISORDER [None]
  - BRONCHITIS [None]
  - DRY MOUTH [None]
  - ECZEMA [None]
  - EXCORIATION [None]
  - FALL [None]
  - GINGIVAL DISORDER [None]
  - HEADACHE [None]
  - HYPERGLYCAEMIA [None]
  - HYPERLIPIDAEMIA [None]
  - HYPERTRIGLYCERIDAEMIA [None]
  - IMPAIRED HEALING [None]
  - JAW DISORDER [None]
  - JOINT EFFUSION [None]
  - MUSCLE STRAIN [None]
  - MUSCULOSKELETAL CHEST PAIN [None]
  - NASAL DISORDER [None]
  - OEDEMA PERIPHERAL [None]
  - ORAL DISORDER [None]
  - OSTEONECROSIS [None]
  - PAIN [None]
  - PHOTOSENSITIVITY REACTION [None]
  - POST LAMINECTOMY SYNDROME [None]
  - RENAL FAILURE [None]
  - RIB FRACTURE [None]
  - SINUSITIS [None]
  - SKIN ULCER [None]
  - TONSILLAR DISORDER [None]
  - TOOTH DISORDER [None]
  - TOOTH EXTRACTION [None]
  - TOOTH INFECTION [None]
  - URINARY TRACT INFECTION [None]
  - WHEEZING [None]
